FAERS Safety Report 13680193 (Version 2)
Quarter: 2017Q3

REPORT INFORMATION
  Report Type: Spontaneous
  Country: CA (occurrence: CA)
  Receive Date: 20170622
  Receipt Date: 20170925
  Transmission Date: 20171127
  Serious: Yes (Hospitalization)
  Sender: FDA-Public Use
  Company Number: CA-BAUSCH-BL-2017-019278

PATIENT
  Age: 67 Year
  Sex: Male

DRUGS (2)
  1. METRONIDAZOLE. [Suspect]
     Active Substance: METRONIDAZOLE
     Indication: CLOSTRIDIUM DIFFICILE INFECTION
     Route: 048
     Dates: end: 20160510
  2. METRONIDAZOLE. [Suspect]
     Active Substance: METRONIDAZOLE
     Indication: GASTROINTESTINAL BACTERIAL INFECTION
     Route: 048

REACTIONS (13)
  - Nasal dryness [Recovered/Resolved]
  - Dyspnoea [Recovered/Resolved]
  - Loss of personal independence in daily activities [Recovered/Resolved]
  - Ear discomfort [Recovered/Resolved]
  - Hypoaesthesia [Unknown]
  - Insomnia [Recovered/Resolved]
  - Dizziness [Unknown]
  - Dysgeusia [Recovered/Resolved]
  - Fatigue [Unknown]
  - Head discomfort [Recovered/Resolved]
  - Tremor [Recovered/Resolved]
  - Discomfort [Recovered/Resolved]
  - Dry mouth [Recovered/Resolved]

NARRATIVE: CASE EVENT DATE: 20160411
